FAERS Safety Report 6188726-3 (Version None)
Quarter: 2009Q2

REPORT INFORMATION
  Report Type: 
  Country: None (occurrence: None)
  Receive Date: 20090513
  Receipt Date: 20090501
  Transmission Date: 20091009
  Serious: Yes (Other)
  Sender: FDA-Public Use
  Company Number: GB-JNJFOC-20090101303

PATIENT
  Sex: Female
  Weight: 54 kg

DRUGS (10)
  1. REMICADE [Suspect]
     Route: 042
  2. REMICADE [Suspect]
     Route: 042
  3. REMICADE [Suspect]
     Indication: RHEUMATOID ARTHRITIS
     Route: 042
  4. PREDNISOLONE [Concomitant]
     Route: 050
  5. ARTHROTEC [Concomitant]
  6. SULFASALAZINE [Concomitant]
     Route: 048
  7. METHOTREXATE [Concomitant]
     Route: 048
  8. ACTONEL [Concomitant]
  9. AMITRIPTLINE HYDROCHLORIDE TAB [Concomitant]
  10. FOLIC ACID [Concomitant]

REACTIONS (3)
  - EMPHYSEMA [None]
  - INTERSTITIAL LUNG DISEASE [None]
  - LUNG SQUAMOUS CELL CARCINOMA STAGE UNSPECIFIED [None]
